FAERS Safety Report 9728758 (Version 1)
Quarter: 2013Q4

REPORT INFORMATION
  Report Type: Spontaneous
  Country: US (occurrence: US)
  Receive Date: 20131204
  Receipt Date: 20131204
  Transmission Date: 20140711
  Serious: No
  Sender: FDA-Public Use
  Company Number: US-PFIZER INC-2013346089

PATIENT
  Age: 57 Year
  Sex: Male
  Weight: 107 kg

DRUGS (1)
  1. NEURONTIN [Suspect]
     Indication: NEURALGIA
     Dosage: UNK,3X/DAY
     Dates: start: 2006

REACTIONS (1)
  - Drug ineffective [Unknown]
